FAERS Safety Report 6961048-6 (Version None)
Quarter: 2010Q3

REPORT INFORMATION
  Report Type: 
  Country: None (occurrence: None)
  Receive Date: 20100901
  Receipt Date: 20100825
  Transmission Date: 20110219
  Serious: Yes (Hospitalization)
  Sender: FDA-Public Use
  Company Number: JP-MERCK-1007USA00439

PATIENT
  Age: 42 Year
  Sex: Male
  Weight: 84 kg

DRUGS (13)
  1. PEPCID RPD [Suspect]
     Route: 048
     Dates: start: 20100531, end: 20100704
  2. PEPCID [Suspect]
     Route: 041
     Dates: start: 20100528, end: 20100530
  3. SEROQUEL [Suspect]
     Indication: BIPOLAR DISORDER
     Route: 048
     Dates: start: 20100622, end: 20100625
  4. PREDONINE [Suspect]
     Indication: DRUG ERUPTION
     Route: 048
     Dates: start: 20100531, end: 20100602
  5. PREDONINE [Suspect]
     Route: 048
     Dates: start: 20100603, end: 20100605
  6. PREDONINE [Suspect]
     Route: 048
     Dates: start: 20100606, end: 20100608
  7. PREDONINE [Suspect]
     Route: 048
     Dates: start: 20100609, end: 20100622
  8. PREDONINE [Suspect]
     Route: 048
     Dates: start: 20100623, end: 20100625
  9. PREDONINE [Suspect]
     Route: 048
     Dates: start: 20100626, end: 20100629
  10. PREDONINE [Suspect]
     Route: 048
     Dates: start: 20100630, end: 20100704
  11. SOLU-MEDROL [Suspect]
     Indication: DRUG ERUPTION
     Route: 041
     Dates: start: 20100528, end: 20100530
  12. LIMAS [Concomitant]
     Route: 048
  13. DEPAKENE [Concomitant]
     Route: 048

REACTIONS (1)
  - DIABETES MELLITUS [None]
